FAERS Safety Report 6267613-6 (Version None)
Quarter: 2009Q3

REPORT INFORMATION
  Report Type: 
  Country: None (occurrence: None)
  Receive Date: 20090714
  Receipt Date: 20090702
  Transmission Date: 20100115
  Serious: Yes (Disabling, Other)
  Sender: FDA-Public Use
  Company Number: CA-PFIZER INC-2009211051

PATIENT
  Age: 50 Year

DRUGS (34)
  1. LYRICA [Suspect]
     Indication: NEURALGIA
     Dosage: 75 MG, 1X/DAY
     Dates: start: 20080401, end: 20080101
  2. LYRICA [Suspect]
     Dosage: 150 MG, 2X/DAY
     Dates: start: 20080401
  3. METFORMIN HYDROCHLORIDE [Concomitant]
     Dosage: 500 MG, 2X/DAY
     Dates: start: 20020602
  4. METFORMIN HYDROCHLORIDE [Concomitant]
     Dosage: 1000 MG, 2X/DAY
     Dates: start: 20090502
  5. LORAZEPAM [Concomitant]
     Dosage: 2 MG, 1X/DAY
     Dates: start: 20090520
  6. PLAVIX [Concomitant]
     Dosage: 75 MG, 1X/DAY
     Dates: start: 20090615
  7. LIPITOR [Concomitant]
     Dosage: 20 MG, 1X/DAY
     Dates: start: 20070907
  8. TRAZODONE [Concomitant]
     Dosage: 100 MG, 1X/DAY
     Dates: start: 20070926
  9. NEXIUM [Concomitant]
     Dosage: 40 MG, 1X/DAY
     Dates: start: 20070104
  10. DOMPERIDONE [Concomitant]
     Dosage: 20 MG, AS NEEDED
  11. NORTRIPTYLINE [Concomitant]
     Dosage: 10 MG, 1X/DAY
     Dates: start: 20090502
  12. CESAMET [Concomitant]
     Dosage: 1 MG, 3X/DAY
     Dates: start: 20090617
  13. ADVIL [Concomitant]
     Dosage: UNK
  14. ACETYLSALICYLIC ACID [Concomitant]
     Dosage: UNK
  15. TYLENOL [Concomitant]
     Dosage: UNK
  16. GRAVOL TAB [Concomitant]
     Dosage: UNK
  17. HYDROMORPHONE [Concomitant]
     Dosage: 4 MG, 4X/DAY
     Dates: start: 20080206
  18. METOPROLOL [Concomitant]
     Dosage: 150 MG, 2X/DAY
     Dates: start: 20040527
  19. METOPROLOL [Concomitant]
     Dosage: 50 MG, 2X/DAY
     Dates: start: 20020602
  20. NOVASEN [Concomitant]
     Dosage: 325 MG, 1X/DAY
     Dates: start: 20020602
  21. PAXIL [Concomitant]
     Dosage: 20 MG, 1X/DAY
     Dates: start: 20020602
  22. RANITIDINE [Concomitant]
     Dosage: 150 MG, 1X/DAY
     Dates: start: 20090617
  23. HUMULIN 70/30 [Concomitant]
     Dosage: 100 UNK, UNK
     Dates: start: 20090502
  24. MELOXICAM [Concomitant]
     Dosage: 7.5 MG, 1X/DAY
     Dates: start: 20070619
  25. VENLAFAXINE [Concomitant]
     Dosage: 150 MG, 2X/DAY
     Dates: start: 20070829
  26. RAMIPRIL [Concomitant]
     Dosage: 5 MG, 2X/DAY
     Dates: start: 20090502
  27. APO-DILTIAZ [Concomitant]
     Dosage: 180 MG, 1X/DAY
     Dates: start: 20090408
  28. NOVO-HYDROXYZIN [Concomitant]
     Dosage: 25 MG, 1X/DAY
     Dates: start: 20090408
  29. DILAUDID [Concomitant]
     Dosage: 2 MG, 3X/DAY
     Dates: start: 20090520
  30. FERROUS FUMARATE [Concomitant]
     Dosage: 300 MG, 1X/DAY
     Dates: start: 20081016
  31. NOVO-ATENOL [Concomitant]
     Dosage: 100 MG, 1X/DAY
     Dates: start: 20071113
  32. QUININE [Concomitant]
     Dosage: 300 MG, 1X/DAY
     Dates: start: 20070820
  33. PENNSAID [Concomitant]
     Dosage: UNK
     Dates: start: 20051017
  34. CELEBREX [Concomitant]
     Dosage: 200 MG, 1X/DAY
     Dates: start: 20040621

REACTIONS (9)
  - BLOOD GLUCOSE FLUCTUATION [None]
  - BLOOD PRESSURE FLUCTUATION [None]
  - CONFUSIONAL STATE [None]
  - DECREASED APPETITE [None]
  - DIZZINESS [None]
  - FALL [None]
  - FATIGUE [None]
  - LOSS OF CONSCIOUSNESS [None]
  - NAUSEA [None]
